FAERS Safety Report 9902015 (Version 1)
Quarter: 2014Q1

REPORT INFORMATION
  Report Type: Spontaneous
  Country: DE (occurrence: DE)
  Receive Date: 20140217
  Receipt Date: 20140217
  Transmission Date: 20141002
  Serious: Yes (Congenital Anomaly)
  Sender: FDA-Public Use
  Company Number: GXKR2014DE000890

PATIENT
  Age: 1 Day
  Sex: Female
  Weight: 3.55 kg

DRUGS (5)
  1. VENLAFAXINE [Suspect]
     Indication: POST-TRAUMATIC STRESS DISORDER
     Dosage: 150 MG, QD
     Route: 064
     Dates: start: 20120926, end: 20130214
  2. VENLAFAXINE [Suspect]
     Dosage: 75 MG, QD
     Dates: start: 20130215, end: 20130601
  3. ACIDO FOLICO [Concomitant]
     Indication: PROPHYLAXIS OF NEURAL TUBE DEFECT
     Dosage: 0.8 [MG/D]
     Route: 064
     Dates: start: 20120825, end: 20130601
  4. METRONIDAZOLE [Concomitant]
     Indication: URINARY TRACT INFECTION
     Route: 064
     Dates: start: 20121102, end: 20121102
  5. CEFUROXIME [Concomitant]
     Indication: URINARY TRACT INFECTION
     Route: 064
     Dates: start: 20121102, end: 20121102

REACTIONS (2)
  - Haemangioma congenital [Recovering/Resolving]
  - Naevus flammeus [Unknown]
